FAERS Safety Report 25425557 (Version 2)
Quarter: 2025Q4

REPORT INFORMATION
  Report Type: Spontaneous
  Country: CA (occurrence: CA)
  Receive Date: 20250611
  Receipt Date: 20251013
  Transmission Date: 20260118
  Serious: Yes (Other)
  Sender: JOHNSON AND JOHNSON
  Company Number: CA-JNJFOC-20250607318

PATIENT
  Age: 82 Year
  Sex: Male

DRUGS (2)
  1. ERLEADA [Suspect]
     Active Substance: APALUTAMIDE
     Indication: Hormone-dependent prostate cancer
     Route: 048
     Dates: start: 20231121, end: 20251007
  2. GOSERELIN [Concomitant]
     Active Substance: GOSERELIN
     Indication: Hormone-dependent prostate cancer
     Route: 058
     Dates: start: 20230928

REACTIONS (4)
  - Atrioventricular block second degree [Unknown]
  - Balance disorder [Unknown]
  - Brain fog [Unknown]
  - Hypertension [Unknown]
